FAERS Safety Report 6740087-4 (Version None)
Quarter: 2010Q2

REPORT INFORMATION
  Report Type: 
  Country: None (occurrence: None)
  Receive Date: 20100525
  Receipt Date: 20100325
  Transmission Date: 20101027
  Serious: No
  Sender: FDA-Public Use
  Company Number: A0852961A

PATIENT
  Sex: Male

DRUGS (1)
  1. MUPIROCIN [Suspect]
     Indication: IMPETIGO
     Route: 065

REACTIONS (4)
  - DRUG EFFECT DECREASED [None]
  - IMPETIGO [None]
  - LOCAL SWELLING [None]
  - STAPHYLOCOCCAL INFECTION [None]
